FAERS Safety Report 8049579-1 (Version None)
Quarter: 2012Q1

REPORT INFORMATION
  Report Type: 
  Country: None (occurrence: None)
  Receive Date: 20120117
  Receipt Date: 20120112
  Transmission Date: 20120608
  Serious: Yes (Hospitalization)
  Sender: FDA-Public Use
  Company Number: GB-BRISTOL-MYERS SQUIBB COMPANY-16185530

PATIENT
  Age: 67 Year
  Sex: Male

DRUGS (11)
  1. NITRATES [Concomitant]
  2. DIGOXIN [Concomitant]
     Dates: start: 20110509
  3. CODEINE PHOSPHATE [Concomitant]
     Dates: start: 20110627
  4. CHLORPHENIRAMINE MALEATE [Concomitant]
     Dates: start: 20110919
  5. GLICLAZIDE [Suspect]
     Indication: DIABETES MELLITUS
     Dates: start: 20110723
  6. PLACEBO [Suspect]
     Indication: TYPE 2 DIABETES MELLITUS
     Dosage: INTER ON 10FEB11,RESTARTED ON 3MAR11, INTER ON 27SEP11
     Dates: start: 20100805
  7. PREDNISOLONE [Concomitant]
     Dates: start: 20110714
  8. ACETAMINOPHEN [Concomitant]
     Dates: start: 20110627
  9. BLINDED: SAXAGLIPTIN [Suspect]
     Indication: TYPE 2 DIABETES MELLITUS
     Dosage: INTER ON 10FEB11,RESTARTED ON 3MAR11, INTER ON 27SEP11
     Dates: start: 20100805
  10. ASPIRIN [Concomitant]
     Dosage: 1DF:{100MG
  11. ALLOPURINOL [Suspect]
     Dates: start: 20110826, end: 20110919

REACTIONS (1)
  - STEVENS-JOHNSON SYNDROME [None]
